FAERS Safety Report 8467799-9 (Version None)
Quarter: 2012Q2

REPORT INFORMATION
  Report Type: 
  Country: None (occurrence: None)
  Receive Date: 20120626
  Receipt Date: 20120622
  Transmission Date: 20120825
  Serious: Yes (Hospitalization)
  Sender: FDA-Public Use
  Company Number: IT-ROCHE-1081481

PATIENT

DRUGS (6)
  1. CYCLOPHOSPHAMIDE [Concomitant]
     Route: 042
     Dates: start: 20110909, end: 20110909
  2. METHYLPREDNISOLONE [Concomitant]
     Route: 042
     Dates: start: 20110909, end: 20110909
  3. ALLOPURINOL [Concomitant]
     Route: 048
  4. VINCRISTINE [Concomitant]
     Route: 042
     Dates: start: 20110909, end: 20110909
  5. PREDNISONE TAB [Concomitant]
     Route: 048
     Dates: start: 20110910, end: 20110913
  6. MABTHERA [Suspect]
     Indication: PRODUCT USED FOR UNKNOWN INDICATION
     Route: 042
     Dates: start: 20110919, end: 20110919

REACTIONS (8)
  - URTICARIA [None]
  - DYSPNOEA [None]
  - BRADYCARDIA [None]
  - HYPOTENSION [None]
  - ANAPHYLACTIC REACTION [None]
  - HYPERHIDROSIS [None]
  - DYSPHONIA [None]
  - CHILLS [None]
